FAERS Safety Report 23464767 (Version 1)
Quarter: 2024Q1

REPORT INFORMATION
  Report Type: Spontaneous
  Country: US (occurrence: US)
  Receive Date: 20240201
  Receipt Date: 20240201
  Transmission Date: 20240410
  Serious: No
  Sender: FDA-Public Use
  Company Number: US-BAXTER-2024BAX011666

PATIENT

DRUGS (1)
  1. MYXREDLIN [Suspect]
     Active Substance: INSULIN HUMAN
     Dosage: AT AN UNSPECIFIED DOSE AND FREQUENCY (BAG VOLUME: 100 ML)
     Route: 041

REACTIONS (1)
  - Drug ineffective [Unknown]
